APPROVED DRUG PRODUCT: STIMATE (NEEDS NO REFRIGERATION)
Active Ingredient: DESMOPRESSIN ACETATE
Strength: 0.15MG/SPRAY
Dosage Form/Route: SPRAY, METERED;NASAL
Application: N020355 | Product #002
Applicant: FERRING PHARMACEUTICALS INC
Approved: Oct 24, 2007 | RLD: Yes | RS: No | Type: DISCN